FAERS Safety Report 9161200 (Version 2)
Quarter: 2013Q2

REPORT INFORMATION
  Report Type: Spontaneous
  Country: US (occurrence: US)
  Receive Date: 20130313
  Receipt Date: 20130403
  Transmission Date: 20140414
  Serious: Yes (Other)
  Sender: FDA-Public Use
  Company Number: US-GLAXOSMITHKLINE-A1015154A

PATIENT
  Age: 77 Year
  Sex: Female

DRUGS (2)
  1. RYTHMOL SR [Suspect]
     Indication: ATRIAL FIBRILLATION
     Dosage: 325MG TWICE PER DAY
     Route: 048
     Dates: start: 201003
  2. NO CONCURRENT MEDICATION [Concomitant]

REACTIONS (3)
  - Atrial fibrillation [Recovering/Resolving]
  - Blood pressure decreased [Unknown]
  - Heart rate decreased [Unknown]
